FAERS Safety Report 5330054-X (Version None)
Quarter: 2007Q2

REPORT INFORMATION
  Report Type: 
  Country: None (occurrence: None)
  Receive Date: 20070515
  Receipt Date: 20070430
  Transmission Date: 20071010
  Serious: Yes (Hospitalization)
  Sender: FDA-Public Use
  Company Number: 2007RR-07338

PATIENT
  Age: 80 Year
  Sex: Male

DRUGS (2)
  1. IBUPROFEN [Suspect]
     Indication: BACK PAIN
     Dosage: 400 MG, ORAL
     Route: 048
     Dates: start: 20070201, end: 20070401
  2. PARACETAMOL (ACETAMINOPHEN/PARACETAOL) [Concomitant]

REACTIONS (1)
  - FAECES DISCOLOURED [None]
